FAERS Safety Report 8842155 (Version 4)
Quarter: 2013Q2

REPORT INFORMATION
  Report Type: Report from Study
  Country: CA (occurrence: CA)
  Receive Date: 20121016
  Receipt Date: 20130424
  Transmission Date: 20140414
  Serious: Yes (Death, Hospitalization)
  Sender: FDA-Public Use
  Company Number: PHHY2012CA042645

PATIENT
  Age: 56 Year
  Sex: Male

DRUGS (1)
  1. ZOMETA [Suspect]
     Indication: RENAL CELL CARCINOMA
     Dosage: 3.5 MG, EVERY 8 WEEKS
     Route: 042
     Dates: start: 20120210, end: 20130209

REACTIONS (6)
  - Death [Fatal]
  - Vomiting [Unknown]
  - Hypercalcaemia [Unknown]
  - Contusion [Unknown]
  - Fluid intake reduced [Unknown]
  - Anxiety [Unknown]
